FAERS Safety Report 4791570-2 (Version None)
Quarter: 2005Q4

REPORT INFORMATION
  Report Type: 
  Country: None (occurrence: None)
  Receive Date: 20051007
  Receipt Date: 20050324
  Transmission Date: 20060501
  Serious: No
  Sender: FDA-Public Use
  Company Number: US-BRISTOL-MYERS SQUIBB COMPANY-12909941

PATIENT
  Age: 88 Year
  Sex: Female
  Weight: 49 kg

DRUGS (7)
  1. AVAPRO [Suspect]
     Dates: start: 20050101
  2. RYTHMOL [Concomitant]
  3. CAPTOPRIL [Concomitant]
  4. PLAVIX [Concomitant]
  5. PROTONIX [Concomitant]
  6. ECOTRIN [Concomitant]
  7. OCUVITE [Concomitant]

REACTIONS (2)
  - ABDOMINAL DISCOMFORT [None]
  - ECZEMA [None]
